FAERS Safety Report 10664075 (Version 1)
Quarter: 2014Q4

REPORT INFORMATION
  Report Type: Spontaneous
  Country: US (occurrence: None)
  Receive Date: 20141208
  Receipt Date: 20141208
  Transmission Date: 20150529
  Serious: No
  Sender: FDA-Public Use
  Company Number: 2014TUS006932

PATIENT
  Sex: Female

DRUGS (6)
  1. BRINTELLIX [Suspect]
     Active Substance: VORTIOXETINE HYDROBROMIDE
     Indication: MAJOR DEPRESSION
     Route: 048
  2. BENICAR(OLMESARTAN MEDOXOMIL) [Concomitant]
  3. ATORVASTATIN(ATORVASTATIN) [Concomitant]
  4. LORATADINE(LORATADINE) [Concomitant]
  5. PREVACID(LANSOPRAZOLE [Concomitant]
  6. GLPIZIDE ER(GLIPIZIDE) [Concomitant]

REACTIONS (5)
  - Pain in extremity [None]
  - Grip strength decreased [None]
  - Arthralgia [None]
  - Nausea [None]
  - Diabetes mellitus inadequate control [None]

NARRATIVE: CASE EVENT DATE: 20140725
